FAERS Safety Report 9348272 (Version 1)
Quarter: 2013Q2

REPORT INFORMATION
  Report Type: Spontaneous
  Country: US (occurrence: US)
  Receive Date: 20130614
  Receipt Date: 20130614
  Transmission Date: 20140414
  Serious: Yes (Death, Other)
  Sender: FDA-Public Use
  Company Number: US-PFIZER INC-2013177663

PATIENT
  Age: 56 Year
  Sex: Male

DRUGS (1)
  1. CAMPTOSAR [Suspect]
     Indication: PANCREATIC CARCINOMA
     Dosage: 320 MG, EVERY 2 WEEKS

REACTIONS (4)
  - Disease progression [Fatal]
  - Pancreatic carcinoma [Fatal]
  - Hip fracture [Unknown]
  - Fall [Unknown]
